FAERS Safety Report 11356988 (Version 1)
Quarter: 2015Q3

REPORT INFORMATION
  Report Type: Spontaneous
  Country: US (occurrence: US)
  Receive Date: 20150803
  Receipt Date: 20150803
  Transmission Date: 20151125
  Serious: No
  Sender: FDA-Public Use
  Company Number: US-ELI_LILLY_AND_COMPANY-US201305008340

PATIENT
  Sex: Male

DRUGS (2)
  1. VALACICLOVIR [Concomitant]
     Active Substance: VALACYCLOVIR HYDROCHLORIDE
     Dosage: UNK, PRN
     Route: 065
  2. STRATTERA [Suspect]
     Active Substance: ATOMOXETINE HYDROCHLORIDE
     Indication: ATTENTION DEFICIT/HYPERACTIVITY DISORDER
     Dosage: 100 MG, QD
     Route: 065
     Dates: start: 201301, end: 20130517

REACTIONS (5)
  - Drug withdrawal syndrome [Unknown]
  - Yawning [Unknown]
  - Fatigue [Unknown]
  - Somnolence [Unknown]
  - Head discomfort [Unknown]

NARRATIVE: CASE EVENT DATE: 20130519
